FAERS Safety Report 11316496 (Version 1)
Quarter: 2015Q3

REPORT INFORMATION
  Report Type: Spontaneous
  Country: NL (occurrence: NL)
  Receive Date: 20150728
  Receipt Date: 20150728
  Transmission Date: 20151125
  Serious: Yes (Hospitalization)
  Sender: FDA-Public Use
  Company Number: NL-ASTRAZENECA-2015SE72370

PATIENT
  Age: 79 Year
  Sex: Female

DRUGS (1)
  1. FASLODEX [Suspect]
     Active Substance: FULVESTRANT
     Indication: NEOPLASM MALIGNANT
     Dosage: 50MG/ML WWSP 5ML 500 MG 1 DOSE EVERY TWO WEEK
     Route: 030
     Dates: start: 20150615

REACTIONS (4)
  - Depressed level of consciousness [Unknown]
  - Dysstasia [Unknown]
  - Dehydration [Unknown]
  - Tremor [Unknown]
